FAERS Safety Report 8781127 (Version 1)
Quarter: 2012Q4

REPORT INFORMATION
  Report Type: 
  Country: US (occurrence: US)
  Receive Date: 20120913
  Receipt Date: 20120913
  Transmission Date: 20130627
  Serious: No
  Sender: FDA-Public Use
  Company Number: US-VERTEX PHARMACEUTICAL INC.-AE-2012-008043

PATIENT
  Age: 47 Year
  Sex: Female
  Weight: 68.18 kg

DRUGS (8)
  1. INCIVEK [Suspect]
     Indication: HEPATITIS C
     Route: 048
     Dates: start: 20120413
  2. PEGASYS [Concomitant]
     Indication: HEPATITIS C
     Route: 058
     Dates: start: 20120413
  3. COPEGUS [Concomitant]
     Indication: HEPATITIS C
     Route: 048
     Dates: start: 20120413
  4. LORATADINE [Concomitant]
     Indication: PRURITUS
     Route: 048
  5. ZANTAC [Concomitant]
     Route: 048
  6. PROZAC [Concomitant]
     Route: 048
  7. PHENERGAN [Concomitant]
     Indication: NAUSEA
     Route: 048
  8. VALIUM [Concomitant]
     Indication: ANXIETY
     Route: 048

REACTIONS (5)
  - Glossodynia [Not Recovered/Not Resolved]
  - Tongue ulceration [Not Recovered/Not Resolved]
  - Throat irritation [Not Recovered/Not Resolved]
  - Vulvovaginal mycotic infection [Unknown]
  - Oral candidiasis [Not Recovered/Not Resolved]
